FAERS Safety Report 7554758-3 (Version None)
Quarter: 2011Q2

REPORT INFORMATION
  Report Type: 
  Country: None (occurrence: None)
  Receive Date: 20110614
  Receipt Date: 20110614
  Transmission Date: 20111010
  Serious: Yes (Other)
  Sender: FDA-Public Use
  Company Number: None

PATIENT
  Age: 59 Year
  Sex: Female
  Weight: 99.7913 kg

DRUGS (4)
  1. LIOTHYRONINE SODIUM [Suspect]
  2. PROPRANOLOL [Concomitant]
  3. LEVOTHYROXINE SODIUM -GENERIC- [Concomitant]
  4. CLONAZEPAM [Concomitant]

REACTIONS (7)
  - DEPRESSION [None]
  - PARANOIA [None]
  - CRYING [None]
  - PRODUCT SUBSTITUTION ISSUE [None]
  - DELUSION [None]
  - CONVERSION DISORDER [None]
  - AMNESIA [None]
